FAERS Safety Report 8231190-0 (Version None)
Quarter: 2012Q1

REPORT INFORMATION
  Report Type: 
  Country: None (occurrence: None)
  Receive Date: 20120323
  Receipt Date: 20120314
  Transmission Date: 20120608
  Serious: Yes (Hospitalization)
  Sender: FDA-Public Use
  Company Number: DE-VERTEX PHARMACEUTICALS INC.-000000000000000380

PATIENT
  Age: 45 Year
  Sex: Male
  Weight: 87 kg

DRUGS (13)
  1. PEGASYS [Concomitant]
     Route: 058
     Dates: start: 20111223, end: 20120203
  2. PEGASYS [Concomitant]
     Dosage: AFTER STOP OF TELAPREVIR THERAPY THE INTERFERON DOSE WAS INCREASED TO 135?G AGAIN.
     Route: 058
     Dates: start: 20120203
  3. NORVIR [Concomitant]
  4. TRUVADA [Concomitant]
  5. ZOLPIDEM [Concomitant]
  6. INCIVO [Suspect]
     Indication: HEPATITIS C
     Dosage: DOSAGE FORM: TABLET
     Route: 048
     Dates: start: 20111111, end: 20120203
  7. OMEPRAZOLE [Concomitant]
  8. COPEGUS [Concomitant]
     Route: 048
     Dates: start: 20120301
  9. PEGASYS [Concomitant]
     Indication: HEPATITIS C
     Dosage: WAS REDUCED DUE TO THROMBOCYTOPENIA  ON 23-DEC-2011 TO 90?G (PLATELETS BELOW 50.000)
     Route: 058
     Dates: start: 20111111, end: 20111223
  10. CITALOPRAM HYDROBROMIDE [Concomitant]
  11. REYATAZ [Concomitant]
     Dosage: DOSAGE FORM: CAPSULE
  12. COPEGUS [Concomitant]
     Indication: HEPATITIS C
     Route: 048
     Dates: start: 20111111
  13. COPEGUS [Concomitant]
     Route: 048
     Dates: end: 20120301

REACTIONS (2)
  - ANAEMIA [None]
  - BRONCHOPNEUMONIA [None]
